FAERS Safety Report 19186143 (Version 1)
Quarter: 2021Q2

REPORT INFORMATION
  Report Type: Report from Study
  Country: None (occurrence: CO)
  Receive Date: 20210427
  Receipt Date: 20210427
  Transmission Date: 20210717
  Serious: Yes (Other)
  Sender: FDA-Public Use
  Company Number: CO-ABBVIE-21K-036-3878045-00

PATIENT
  Sex: Male
  Weight: 78 kg

DRUGS (1)
  1. IMBRUVICA [Suspect]
     Active Substance: IBRUTINIB
     Indication: CHRONIC LYMPHOCYTIC LEUKAEMIA
     Dosage: LAST INTAKE OF IBRUTINIB WAS ON 29?MAR?2021.
     Route: 048
     Dates: start: 20190814

REACTIONS (1)
  - Carpal tunnel syndrome [Recovering/Resolving]
